FAERS Safety Report 6773628-1 (Version None)
Quarter: 2010Q2

REPORT INFORMATION
  Report Type: 
  Country: None (occurrence: None)
  Receive Date: 20100614
  Receipt Date: 20100601
  Transmission Date: 20101027
  Serious: Yes (Other)
  Sender: FDA-Public Use
  Company Number: DSA_43215_2010

PATIENT
  Age: 80 Year
  Sex: Male

DRUGS (4)
  1. ENALAPRIL MALEATE [Suspect]
     Indication: HYPERTENSION
     Dosage: (30 MG QD ORAL)
     Route: 048
     Dates: start: 20050301
  2. CARVEDILOL [Suspect]
     Indication: HYPERTENSION
     Dosage: (12.5 MG QD ORAL)
     Route: 048
     Dates: start: 20060101
  3. LASIX [Suspect]
     Indication: HYPERTENSION
     Dosage: (25 MG BID ORAL)
     Route: 048
     Dates: start: 20050301
  4. KANRENOL (CANRENOATE POTASSIUM (KANRENOL)) (NOT CODED) [Suspect]
     Indication: HYPERTENSION
     Dosage: (25 MG QD ORAL)
     Route: 048
     Dates: start: 20050301

REACTIONS (3)
  - HYPERKALAEMIA [None]
  - HYPOTENSION [None]
  - RENAL FAILURE ACUTE [None]
